FAERS Safety Report 4490793-X (Version None)
Quarter: 2004Q4

REPORT INFORMATION
  Report Type: 
  Country: None (occurrence: None)
  Receive Date: 20041102
  Receipt Date: 20040804
  Transmission Date: 20050328
  Serious: Yes (Hospitalization)
  Sender: FDA-Public Use
  Company Number: US-ROCHE-376777

PATIENT
  Age: 28 Year
  Sex: Male

DRUGS (1)
  1. ACCUTANE [Suspect]
     Indication: DRUG USE FOR UNKNOWN INDICATION
     Route: 048

REACTIONS (18)
  - ANAEMIA [None]
  - ARTHRALGIA [None]
  - ASTHENIA [None]
  - BACK PAIN [None]
  - COLITIS ULCERATIVE [None]
  - CYST [None]
  - DIVERTICULITIS [None]
  - DIVERTICULUM [None]
  - FATIGUE [None]
  - GASTROINTESTINAL DISORDER [None]
  - GASTROOESOPHAGEAL REFLUX DISEASE [None]
  - HEADACHE [None]
  - PANCYTOPENIA [None]
  - PROSTATITIS [None]
  - PRURITUS ANI [None]
  - SCIATICA [None]
  - SKIN PAPILLOMA [None]
  - WEIGHT INCREASED [None]
